FAERS Safety Report 9845413 (Version 1)
Quarter: 2014Q1

REPORT INFORMATION
  Report Type: Spontaneous
  Country: IT (occurrence: IT)
  Receive Date: 20140127
  Receipt Date: 20140127
  Transmission Date: 20141002
  Serious: Yes (Hospitalization, Other)
  Sender: FDA-Public Use
  Company Number: IT-SHIRE-ALL1-2014-00509

PATIENT
  Age: 40 Year
  Sex: Male

DRUGS (1)
  1. MESAVANCOL [Suspect]
     Indication: COLITIS ULCERATIVE
     Dosage: 1200 G, 2X/DAY:BID
     Route: 048
     Dates: start: 2011

REACTIONS (2)
  - Lipase increased [Not Recovered/Not Resolved]
  - Amylase increased [Not Recovered/Not Resolved]
